FAERS Safety Report 8911891 (Version 2)
Quarter: 2013Q1

REPORT INFORMATION
  Report Type: Spontaneous
  Country: JP (occurrence: JP)
  Receive Date: 20121115
  Receipt Date: 20130201
  Transmission Date: 20140127
  Serious: Yes (Hospitalization)
  Sender: FDA-Public Use
  Company Number: JP-GLAXOSMITHKLINE-B0844516A

PATIENT
  Age: 77 Year
  Sex: Female

DRUGS (7)
  1. GABAPENTIN ENACARBIL [Suspect]
     Indication: RESTLESS LEGS SYNDROME
     Dosage: 300MG PER DAY
     Route: 048
     Dates: start: 20121019, end: 20121019
  2. DESYREL [Suspect]
     Indication: PRODUCT USED FOR UNKNOWN INDICATION
     Route: 048
     Dates: start: 201206, end: 20121019
  3. MYSLEE [Concomitant]
     Indication: INSOMNIA
     Dates: start: 201206, end: 20121019
  4. U PAN [Concomitant]
     Dates: start: 201206, end: 20121019
  5. AMOBAN [Concomitant]
     Dates: start: 201206, end: 20121019
  6. PYRETHIA [Concomitant]
     Route: 048
     Dates: start: 201206, end: 20121019
  7. MIRTAZAPINE [Concomitant]
     Dates: start: 201206, end: 20121018

REACTIONS (3)
  - Loss of consciousness [Recovered/Resolved]
  - Altered state of consciousness [Recovered/Resolved]
  - Amnesia [Unknown]
